FAERS Safety Report 7673117-6 (Version None)
Quarter: 2011Q3

REPORT INFORMATION
  Report Type: 
  Country: None (occurrence: None)
  Receive Date: 20110810
  Receipt Date: 20110801
  Transmission Date: 20111222
  Serious: Yes (Hospitalization)
  Sender: FDA-Public Use
  Company Number: US-BIOGENIDEC-2011BI028716

PATIENT
  Age: 63 Year
  Sex: Female

DRUGS (3)
  1. AVONEX [Suspect]
     Indication: MULTIPLE SCLEROSIS
     Route: 030
     Dates: start: 20110624
  2. AVONEX [Suspect]
     Route: 030
     Dates: start: 20101012, end: 20110331
  3. AVONEX [Suspect]
     Route: 030
     Dates: start: 20070425, end: 20100902

REACTIONS (1)
  - KNEE ARTHROPLASTY [None]
